FAERS Safety Report 5273137-5 (Version None)
Quarter: 2007Q1

REPORT INFORMATION
  Report Type: 
  Country: None (occurrence: None)
  Receive Date: 20070322
  Receipt Date: 20070314
  Transmission Date: 20070707
  Serious: Yes (Hospitalization)
  Sender: FDA-Public Use
  Company Number: US-SANOFI-SYNTHELABO-F03200700054

PATIENT
  Sex: Male
  Weight: 146 kg

DRUGS (6)
  1. DEXAMETHASONE [Concomitant]
     Dosage: UNK
     Route: 065
  2. COMPAZINE [Concomitant]
     Dosage: UNK
     Route: 065
  3. LUPRON [Concomitant]
     Route: 030
  4. NEULASTA [Concomitant]
     Route: 058
  5. TAXOTERE [Suspect]
     Indication: PROSTATE CANCER
     Route: 042
     Dates: start: 20070222, end: 20070222
  6. OXALIPLATIN [Suspect]
     Indication: PROSTATE CANCER
     Route: 042
     Dates: start: 20070222, end: 20070222

REACTIONS (5)
  - BLINDNESS [None]
  - ENDOCARDITIS [None]
  - INFECTION [None]
  - PANOPHTHALMITIS [None]
  - RENAL FAILURE [None]
